FAERS Safety Report 16936415 (Version 1)
Quarter: 2019Q4

REPORT INFORMATION
  Report Type: Spontaneous
  Country: SG (occurrence: SG)
  Receive Date: 20191018
  Receipt Date: 20191018
  Transmission Date: 20200122
  Serious: Yes (Death, Other)
  Sender: FDA-Public Use
  Company Number: SG-PFIZER INC-2019446660

PATIENT
  Age: 28 Year
  Sex: Male

DRUGS (4)
  1. CHLORPHENIRAMINE MALEATE. [Concomitant]
     Active Substance: CHLORPHENIRAMINE MALEATE
     Dosage: UNK, TWICE A DAY
  2. DEXAMETHASONE. [Concomitant]
     Active Substance: DEXAMETHASONE
     Dosage: UNK
     Dates: start: 20141124
  3. PREDNISOLONE. [Concomitant]
     Active Substance: PREDNISOLONE
     Dosage: UNK, TWICE A DAY
  4. METHOTREXATE. [Suspect]
     Active Substance: METHOTREXATE
     Dosage: UNK (10 TABLETS)

REACTIONS (5)
  - Fungal infection [Fatal]
  - Off label use [Unknown]
  - Product use issue [Unknown]
  - Mucosal inflammation [Unknown]
  - Neutropenia [Unknown]
